FAERS Safety Report 4900900-X (Version None)
Quarter: 2006Q1

REPORT INFORMATION
  Report Type: 
  Country: None (occurrence: None)
  Receive Date: 20060113
  Receipt Date: 20051130
  Transmission Date: 20060701
  Serious: No
  Sender: FDA-Public Use
  Company Number: 2005SP004204

PATIENT
  Age: 80 Year
  Sex: Male
  Weight: 81.6475 kg

DRUGS (8)
  1. LUNESTA [Suspect]
     Indication: INSOMNIA
     Dosage: 3 MG; HS; ORAL
     Route: 048
     Dates: start: 20051101, end: 20051101
  2. ATORVASTATIN CALCIUM [Concomitant]
  3. PTS3 PATCH [Concomitant]
  4. HYZAAR [Concomitant]
  5. ADVAIR DISKUS 100/50 [Concomitant]
  6. NEURONTIN [Concomitant]
  7. CARBAMAZEPINE [Concomitant]
  8. TOPROL-XL [Concomitant]

REACTIONS (2)
  - DRUG INEFFECTIVE [None]
  - INSOMNIA [None]
